FAERS Safety Report 5801201 (Version 22)
Quarter: 2014Q1

REPORT INFORMATION
  Report Type: Spontaneous
  Country: US (occurrence: US)
  Receive Date: 20050523
  Receipt Date: 20140210
  Transmission Date: 20141002
  Serious: Yes (Other)
  Sender: FDA-Public Use
  Company Number: PHEH2005US01236

PATIENT
  Age: 56 Year
  Sex: Male
  Weight: 93.42 kg

DRUGS (32)
  1. ZOMETA [Suspect]
     Indication: METASTASES TO BONE
     Dosage: 4 MG, QMO
     Dates: start: 20021029, end: 20030903
  2. ANTINEOPLASTIC AGENTS [Concomitant]
     Dates: end: 20060420
  3. ZOCOR [Concomitant]
     Dosage: 40 MG, QD
     Route: 048
  4. WELLBUTRIN SR [Concomitant]
     Indication: DEPRESSION
     Dosage: 150 MG, BID
     Route: 048
  5. DECADRON [Concomitant]
     Dosage: 4 MG,
  6. REMERON [Concomitant]
     Dosage: 30 MG, QHS
     Route: 048
  7. LEXAPRO [Concomitant]
     Dosage: 10 MG, QD
     Route: 048
  8. CASODEX [Concomitant]
     Indication: PROSTATE CANCER METASTATIC
     Dosage: 50 MG, QD
     Route: 048
  9. CARBOPLATIN [Concomitant]
     Indication: PROSTATE CANCER METASTATIC
  10. LUPRON [Concomitant]
     Indication: PROSTATE CANCER METASTATIC
  11. TAXOL [Concomitant]
     Indication: PROSTATE CANCER METASTATIC
  12. ATIVAN [Concomitant]
  13. COUMADIN ^BOOTS^ [Concomitant]
     Dates: end: 20041005
  14. ELIXIR PAREGORIQUE ^GIFRER^ [Concomitant]
  15. BENADRYL ^ACHE^ [Concomitant]
     Route: 049
  16. KAOPECTATE [Concomitant]
  17. IBUPROFEN [Concomitant]
     Dosage: 800 MG,
  18. LORTAB [Concomitant]
     Dosage: 5 MG,
  19. ACYCLOVIR [Concomitant]
  20. KEFLEX                                  /UNK/ [Concomitant]
  21. LEVAQUIN [Concomitant]
  22. PENICILLIN VK [Concomitant]
  23. PERIDEX [Concomitant]
  24. HYZAAR [Concomitant]
  25. MULTIVITAMINS [Concomitant]
  26. VITAMIN C [Concomitant]
  27. B COMPLEX [Concomitant]
  28. ZOLPIDEM [Concomitant]
     Dosage: 5 MG, QHS
  29. ASA [Concomitant]
  30. SIMVASTATIN [Concomitant]
  31. BUPROPION [Concomitant]
  32. LORAZEPAM [Concomitant]

REACTIONS (32)
  - Osteonecrosis of jaw [Recovered/Resolved]
  - Jaw disorder [Unknown]
  - Bone disorder [Recovered/Resolved]
  - Impaired healing [Unknown]
  - Swelling [Unknown]
  - Nuclear magnetic resonance imaging abnormal [Unknown]
  - Fistula discharge [Recovered/Resolved]
  - Exostosis [Unknown]
  - Fistula [Unknown]
  - Poor venous access [Unknown]
  - Large intestine polyp [Unknown]
  - Haemorrhoids [Unknown]
  - Tachycardia [Unknown]
  - Dyspnoea [Unknown]
  - Herpes zoster [Unknown]
  - Anxiety [Unknown]
  - Blood pressure increased [Unknown]
  - Insomnia [Unknown]
  - Cataract [Unknown]
  - Hypertension [Unknown]
  - Hypermetropia [Unknown]
  - Presbyopia [Unknown]
  - Nocturia [Unknown]
  - Gastrooesophageal reflux disease [Unknown]
  - Macrocytosis [Unknown]
  - Vitamin D deficiency [Unknown]
  - Rectal haemorrhage [Unknown]
  - Proctitis [Unknown]
  - Ventricular extrasystoles [Unknown]
  - Gastrointestinal haemorrhage [Unknown]
  - Haematochezia [Unknown]
  - Diarrhoea [Unknown]
